FAERS Safety Report 5855943-9 (Version None)
Quarter: 2008Q3

REPORT INFORMATION
  Report Type: 
  Country: None (occurrence: None)
  Receive Date: 20080825
  Receipt Date: 20080819
  Transmission Date: 20090109
  Serious: Yes (Other)
  Sender: FDA-Public Use
  Company Number: PHHY2008JP13683

PATIENT
  Sex: Female

DRUGS (2)
  1. FEMARA [Suspect]
     Route: 048
  2. HERCEPTIN [Suspect]

REACTIONS (1)
  - LYMPHANGIOMA [None]
